FAERS Safety Report 25745473 (Version 2)
Quarter: 2025Q3

REPORT INFORMATION
  Report Type: Report from Study
  Country: KR (occurrence: KR)
  Receive Date: 20250901
  Receipt Date: 20250918
  Transmission Date: 20251020
  Serious: Yes (Hospitalization)
  Sender: ROCHE
  Company Number: KR-ROCHE-10000374608

PATIENT
  Age: 76 Year
  Sex: Male
  Weight: 69.5 kg

DRUGS (6)
  1. CROVALIMAB [Suspect]
     Active Substance: CROVALIMAB
     Indication: Paroxysmal nocturnal haemoglobinuria
     Route: 058
  2. Renalmin [Concomitant]
     Indication: Chronic kidney disease
     Dosage: 1 T
     Route: 048
     Dates: start: 20130621
  3. URSODIOL [Concomitant]
     Active Substance: URSODIOL
     Indication: Hyperbilirubinaemia
     Route: 048
     Dates: start: 20130924
  4. Betmiga PR [Concomitant]
     Indication: Prostatic obstruction
     Route: 048
     Dates: start: 20240123
  5. HARNAL [Concomitant]
     Active Substance: TAMSULOSIN HYDROCHLORIDE
     Indication: Prostatic obstruction
     Route: 048
     Dates: start: 20241004
  6. CHOLINE ALFOSCERATE [Concomitant]
     Active Substance: CHOLINE ALFOSCERATE
     Indication: Memory impairment
     Route: 048
     Dates: start: 20241127

REACTIONS (2)
  - Extravascular haemolysis [Not Recovered/Not Resolved]
  - Cholecystitis acute [Not Recovered/Not Resolved]

NARRATIVE: CASE EVENT DATE: 20250813
